FAERS Safety Report 7374832-4 (Version None)
Quarter: 2011Q1

REPORT INFORMATION
  Report Type: 
  Country: None (occurrence: None)
  Receive Date: 20110325
  Receipt Date: 20110316
  Transmission Date: 20110831
  Serious: Yes (Other)
  Sender: FDA-Public Use
  Company Number: US-ELI_LILLY_AND_COMPANY-US201103005546

PATIENT
  Sex: Male

DRUGS (5)
  1. SERTRALINE HYDROCHLORIDE [Concomitant]
  2. WELLBUTRIN [Concomitant]
  3. TOPROL-XL [Concomitant]
     Indication: BLOOD PRESSURE
  4. ZYPREXA [Suspect]
     Indication: SCHIZOAFFECTIVE DISORDER
     Dosage: 20 MG, DAILY (1/D)
  5. ABILIFY [Concomitant]

REACTIONS (9)
  - VISION BLURRED [None]
  - MYOCARDIAL INFARCTION [None]
  - SKIN DISORDER [None]
  - DYSPNOEA [None]
  - DRUG INEFFECTIVE [None]
  - SPEECH DISORDER [None]
  - ALLERGY TO ANIMAL [None]
  - HYPERHIDROSIS [None]
  - TUBERCULOSIS [None]
